FAERS Safety Report 21904906 (Version 1)
Quarter: 2023Q1

REPORT INFORMATION
  Report Type: Spontaneous
  Country: US (occurrence: None)
  Receive Date: 20230124
  Receipt Date: 20230124
  Transmission Date: 20230417
  Serious: Yes (Life-Threatening, Hospitalization)
  Sender: FDA-Public Use
  Company Number: None

PATIENT
  Age: 50 Year
  Sex: Female
  Weight: 51.26 kg

DRUGS (3)
  1. CLONAZEPAM [Suspect]
     Active Substance: CLONAZEPAM
     Indication: Anxiety
     Dates: end: 20220518
  2. CLONAZEPAM [Suspect]
     Active Substance: CLONAZEPAM
     Indication: Agitation
  3. GABAPENTIN [Suspect]
     Active Substance: GABAPENTIN

REACTIONS (6)
  - Anxiety [None]
  - Depression [None]
  - Malaise [None]
  - Depressed mood [None]
  - Suicide attempt [None]
  - Sedation [None]

NARRATIVE: CASE EVENT DATE: 20220518
